FAERS Safety Report 12714070 (Version 6)
Quarter: 2018Q2

REPORT INFORMATION
  Report Type: Spontaneous
  Country: DE (occurrence: DE)
  Receive Date: 20160905
  Receipt Date: 20180601
  Transmission Date: 20180711
  Serious: Yes (Other)
  Sender: FDA-Public Use
  Company Number: DE-BAUSCH-BL-2016-021259

PATIENT
  Age: 65 Year
  Sex: Female

DRUGS (18)
  1. LEVETIRACETAM. [Interacting]
     Active Substance: LEVETIRACETAM
     Indication: EPILEPSY
  2. LORAZEPAM. [Interacting]
     Active Substance: LORAZEPAM
     Indication: PARTIAL SEIZURES
  3. CLOBAZAM [Interacting]
     Active Substance: CLOBAZAM
     Indication: EPILEPSY
  4. TEMOZOLOMIDE. [Interacting]
     Active Substance: TEMOZOLOMIDE
     Dosage: 200 MG/M2/D/CYCLE, 5 DAYS ON, 23 DAYS OFF FOR SUBSEQUENT CYCLES
     Route: 065
  5. ONDANSETRON [Interacting]
     Active Substance: ONDANSETRON
     Indication: PROPHYLAXIS OF NAUSEA AND VOMITING
     Route: 065
  6. LORAZEPAM. [Suspect]
     Active Substance: LORAZEPAM
     Indication: SEIZURE
     Dosage: AS REQUIRED
     Route: 048
  7. TEMOZOLOMIDE. [Interacting]
     Active Substance: TEMOZOLOMIDE
     Indication: GLIOBLASTOMA MULTIFORME
     Route: 048
     Dates: start: 2014
  8. TEMOZOLOMIDE. [Interacting]
     Active Substance: TEMOZOLOMIDE
     Dosage: 150 MG/M2/D/CYCLE, 5 DAYS ON, 23 DAYS OFF FOR FIRST TWO CYCLES
     Route: 048
  9. ARTESUNATE [Interacting]
     Active Substance: ARTESUNATE
     Indication: GLIOBLASTOMA MULTIFORME
     Route: 048
     Dates: start: 20150920, end: 20151020
  10. LEVETIRACETAM. [Interacting]
     Active Substance: LEVETIRACETAM
     Indication: PARTIAL SEIZURES
     Route: 065
  11. LORAZEPAM. [Interacting]
     Active Substance: LORAZEPAM
     Indication: EPILEPSY
  12. VALPROIC ACID. [Interacting]
     Active Substance: VALPROIC ACID
     Indication: EPILEPSY
  13. ONDANSETRON [Interacting]
     Active Substance: ONDANSETRON
     Indication: NAUSEA
  14. CLOBAZAM [Interacting]
     Active Substance: CLOBAZAM
     Indication: PARTIAL SEIZURES
  15. ARTESUNATE [Interacting]
     Active Substance: ARTESUNATE
     Indication: MALARIA PROPHYLAXIS
  16. LEVETIRACETAM. [Interacting]
     Active Substance: LEVETIRACETAM
     Indication: SEIZURE
     Dosage: STARTING DOSE
     Route: 065
  17. CLOBAZAM [Interacting]
     Active Substance: CLOBAZAM
     Indication: SEIZURE
     Dosage: 5 MG/D, WHEN REQUIRED
     Route: 048
  18. VALPROIC ACID. [Interacting]
     Active Substance: VALPROIC ACID
     Indication: GLIOBLASTOMA MULTIFORME
     Dosage: UNKNOWN DOSE
     Route: 065

REACTIONS (6)
  - Depressed mood [Recovered/Resolved]
  - Product use in unapproved indication [Unknown]
  - Hepatotoxicity [Recovered/Resolved]
  - Drug interaction [Recovered/Resolved]
  - Weight decreased [Recovered/Resolved]
  - Condition aggravated [Recovered/Resolved]

NARRATIVE: CASE EVENT DATE: 20150101
